FAERS Safety Report 8319826-7 (Version None)
Quarter: 2012Q2

REPORT INFORMATION
  Report Type: 
  Country: None (occurrence: None)
  Receive Date: 20120427
  Receipt Date: 20120420
  Transmission Date: 20120825
  Serious: Yes (Hospitalization, Other)
  Sender: FDA-Public Use
  Company Number: US-MILLENNIUM PHARMACEUTICALS, INC.-2008-02486

PATIENT

DRUGS (2)
  1. VELCADE [Suspect]
     Indication: MULTIPLE MYELOMA
     Dosage: 1.3 MG/M2, CYCLIC
     Dates: start: 20071102, end: 20071227
  2. DEXAMETHASONE [Suspect]
     Indication: MULTIPLE MYELOMA
     Dosage: 20 MG, UNK

REACTIONS (16)
  - EJECTION FRACTION DECREASED [None]
  - RESPIRATORY TRACT INFECTION [None]
  - DYSPNOEA [None]
  - VOMITING [None]
  - RENAL FAILURE CHRONIC [None]
  - PYREXIA [None]
  - NAUSEA [None]
  - ALOPECIA [None]
  - VITAMIN B12 DEFICIENCY [None]
  - CARDIAC FAILURE CONGESTIVE [None]
  - ARTERIOSCLEROSIS CORONARY ARTERY [None]
  - WEIGHT INCREASED [None]
  - TUMOUR LYSIS SYNDROME [None]
  - RESPIRATORY FAILURE [None]
  - FATIGUE [None]
  - CARDIOMYOPATHY [None]
